FAERS Safety Report 18761215 (Version 1)
Quarter: 2021Q1

REPORT INFORMATION
  Report Type: Report from Study
  Country: None (occurrence: TW)
  Receive Date: 20210119
  Receipt Date: 20210119
  Transmission Date: 20210419
  Serious: Yes (Hospitalization)
  Sender: FDA-Public Use
  Company Number: TW-ABBVIE-21K-153-3733648-00

PATIENT
  Age: 56 Year
  Sex: Male
  Weight: 62 kg

DRUGS (6)
  1. HUMIRA [Suspect]
     Active Substance: ADALIMUMAB
     Indication: ANKYLOSING SPONDYLITIS
     Route: 058
     Dates: start: 20180423
  2. DOXAZOSIN [Concomitant]
     Active Substance: DOXAZOSIN MESYLATE
     Indication: HYPERTENSION
     Route: 048
     Dates: start: 20200311
  3. HUMIRA [Suspect]
     Active Substance: ADALIMUMAB
     Indication: ANKYLOSING SPONDYLITIS
     Route: 058
     Dates: start: 20120904, end: 20180409
  4. CELEBREX [Concomitant]
     Active Substance: CELECOXIB
     Indication: ANKYLOSING SPONDYLITIS
     Route: 048
     Dates: start: 20200923
  5. ATORVASTATIN [Concomitant]
     Active Substance: ATORVASTATIN
     Indication: HYPERLIPIDAEMIA
     Route: 048
     Dates: start: 20170215
  6. EXFORGE [Concomitant]
     Active Substance: AMLODIPINE BESYLATE\VALSARTAN
     Indication: HYPERTENSION
     Dosage: 5/80 MG
     Route: 048
     Dates: start: 20200311

REACTIONS (6)
  - Proteinuria [Unknown]
  - Hypotension [Recovered/Resolved]
  - Dizziness [Recovered/Resolved]
  - Cold sweat [Recovered/Resolved]
  - IgA nephropathy [Recovering/Resolving]
  - Diabetic nephropathy [Recovering/Resolving]

NARRATIVE: CASE EVENT DATE: 20200111
